FAERS Safety Report 12072696 (Version 4)
Quarter: 2016Q1

REPORT INFORMATION
  Report Type: Spontaneous
  Country: FR (occurrence: FR)
  Receive Date: 20160212
  Receipt Date: 20160310
  Transmission Date: 20160526
  Serious: Yes (Hospitalization)
  Sender: FDA-Public Use
  Company Number: FR-PFIZER INC-2016073996

PATIENT
  Age: 79 Year
  Sex: Female

DRUGS (7)
  1. ASPIRIN. [Concomitant]
     Active Substance: ASPIRIN
     Dosage: 75 MG, DAILY
  2. HEMIGOXINE [Interacting]
     Active Substance: DIGOXIN
     Indication: ARRHYTHMIA SUPRAVENTRICULAR
  3. HEMIGOXINE [Interacting]
     Active Substance: DIGOXIN
     Indication: ATRIAL TACHYCARDIA
  4. HEMIGOXINE [Interacting]
     Active Substance: DIGOXIN
     Indication: ATRIAL FLUTTER
     Dosage: 0.125 MG, DAILY
     Route: 065
  5. CORDARONE [Suspect]
     Active Substance: AMIODARONE HYDROCHLORIDE
     Indication: ARRHYTHMIA
     Dosage: 200 MG, DAILY
     Route: 065
  6. ESOMEPRAZOLE [Concomitant]
     Active Substance: ESOMEPRAZOLE
     Dosage: 40 MG, DAILY
  7. CALCIUM [Concomitant]
     Active Substance: CALCIUM
     Dosage: UNK

REACTIONS (10)
  - Nausea [Recovered/Resolved]
  - Toxicity to various agents [Unknown]
  - Drug interaction [Unknown]
  - Abdominal pain [Recovered/Resolved]
  - Creatinine renal clearance decreased [Unknown]
  - Asthenia [Unknown]
  - Bradycardia [Recovered/Resolved]
  - Confusional state [Recovered/Resolved]
  - Condition aggravated [Unknown]
  - Decreased appetite [Recovered/Resolved]
